FAERS Safety Report 24630313 (Version 3)
Quarter: 2024Q4

REPORT INFORMATION
  Report Type: Spontaneous
  Country: US (occurrence: US)
  Receive Date: 20241118
  Receipt Date: 20241217
  Transmission Date: 20250115
  Serious: No
  Sender: BAUSCH AND LOMB
  Company Number: US-BAUSCHBL-2024BNL037228

PATIENT
  Age: 75 Year
  Sex: Male
  Weight: 104.32 kg

DRUGS (3)
  1. MIEBO [Suspect]
     Active Substance: PERFLUOROHEXYLOCTANE
     Indication: Dry eye
     Dosage: WAS USING 4 TIMES IN A DAY.
     Route: 047
     Dates: start: 20241025
  2. MIEBO [Suspect]
     Active Substance: PERFLUOROHEXYLOCTANE
     Dosage: STILL CONTINUING BUT ONE ONCE A DAY
     Route: 047
  3. CEQUA [Suspect]
     Active Substance: CYCLOSPORINE
     Indication: Dry eye
     Route: 065

REACTIONS (5)
  - Vision blurred [Unknown]
  - Patient dissatisfaction with treatment [Unknown]
  - Product complaint [Unknown]
  - Wrong technique in product usage process [Unknown]
  - Intentional product use issue [Unknown]

NARRATIVE: CASE EVENT DATE: 20240101
